FAERS Safety Report 13868181 (Version 2)
Quarter: 2017Q3

REPORT INFORMATION
  Report Type: Report from Study
  Country: CA (occurrence: CA)
  Receive Date: 20170814
  Receipt Date: 20170819
  Transmission Date: 20171127
  Serious: Yes (Hospitalization, Other)
  Sender: FDA-Public Use
  Company Number: CA-ROCHE-1644511

PATIENT
  Age: 60 Year
  Sex: Female
  Weight: 85 kg

DRUGS (21)
  1. TYLENOL [Concomitant]
     Active Substance: ACETAMINOPHEN
  2. PREDNISONE. [Concomitant]
     Active Substance: PREDNISONE
  3. ALPRAZOLAM. [Concomitant]
     Active Substance: ALPRAZOLAM
  4. RITUXAN [Suspect]
     Active Substance: RITUXIMAB
     Indication: VASCULITIS
     Dosage: MOST RECENT DOSE OF RITUXIMAB: 29/OCT/2015
     Route: 042
     Dates: start: 20151008
  5. RITUXAN [Suspect]
     Active Substance: RITUXIMAB
     Route: 042
     Dates: start: 20161129
  6. METHYLPREDNISOLONE. [Concomitant]
     Active Substance: METHYLPREDNISOLONE
     Indication: PREMEDICATION
     Route: 042
     Dates: start: 20151008
  7. CRESTOR [Concomitant]
     Active Substance: ROSUVASTATIN CALCIUM
     Route: 065
  8. TECTA [Concomitant]
     Active Substance: PANTOPRAZOLE MAGNESIUM
  9. CYMBALTA [Concomitant]
     Active Substance: DULOXETINE HYDROCHLORIDE
  10. RITUXAN [Suspect]
     Active Substance: RITUXIMAB
     Route: 042
     Dates: start: 20170717
  11. GRAVOL [Concomitant]
     Active Substance: DIMENHYDRINATE
  12. BUSPIRONE [Concomitant]
     Active Substance: BUSPIRONE HYDROCHLORIDE
     Route: 065
  13. PRISTIQ EXTENDED-RELEASE [Concomitant]
     Active Substance: DESVENLAFAXINE SUCCINATE
  14. DIPHENHYDRAMINE HCL [Concomitant]
     Active Substance: DIPHENHYDRAMINE HYDROCHLORIDE
     Indication: PREMEDICATION
     Route: 048
     Dates: start: 20151008
  15. AZATHIOPRINE. [Concomitant]
     Active Substance: AZATHIOPRINE
     Route: 065
  16. NABILONE [Concomitant]
     Active Substance: NABILONE
  17. RITUXAN [Suspect]
     Active Substance: RITUXIMAB
     Dosage: NEXT INFUSION IS ON 31/JUL/2017
     Route: 042
     Dates: start: 20170724
  18. ACETAMINOPHEN. [Concomitant]
     Active Substance: ACETAMINOPHEN
     Indication: PREMEDICATION
     Route: 048
     Dates: start: 20151008
  19. PLAVIX [Concomitant]
     Active Substance: CLOPIDOGREL BISULFATE
  20. REACTINE (CANADA) [Concomitant]
     Active Substance: CETIRIZINE HYDROCHLORIDE
  21. RISEDRONATE [Concomitant]
     Active Substance: RISEDRONATE SODIUM

REACTIONS (30)
  - Dyspnoea [Recovering/Resolving]
  - Hot flush [Unknown]
  - Oxygen saturation decreased [Unknown]
  - Blood pressure increased [Unknown]
  - Productive cough [Not Recovered/Not Resolved]
  - Haemoptysis [Not Recovered/Not Resolved]
  - Heart rate increased [Unknown]
  - Vascular occlusion [Unknown]
  - Influenza [Recovered/Resolved]
  - Weight increased [Unknown]
  - Headache [Recovering/Resolving]
  - Off label use [Unknown]
  - Respiratory rate increased [Unknown]
  - Tremor [Not Recovered/Not Resolved]
  - Oral herpes [Recovered/Resolved]
  - Influenza [Not Recovered/Not Resolved]
  - Blood pressure fluctuation [Unknown]
  - Cardiac failure [Unknown]
  - Lung infection [Unknown]
  - Arthralgia [Recovered/Resolved]
  - Pain in extremity [Not Recovered/Not Resolved]
  - Intentional product use issue [Unknown]
  - Fatigue [Not Recovered/Not Resolved]
  - Vessel puncture site bruise [Not Recovered/Not Resolved]
  - Fatigue [Not Recovered/Not Resolved]
  - Bronchitis [Recovered/Resolved]
  - Body temperature increased [Unknown]
  - Procedural pain [Recovering/Resolving]
  - Sinusitis [Not Recovered/Not Resolved]
  - Chest pain [Recovered/Resolved]

NARRATIVE: CASE EVENT DATE: 20151015
